FAERS Safety Report 9357568 (Version 34)
Quarter: 2019Q2

REPORT INFORMATION
  Report Type: Report from Study
  Country: CA (occurrence: CA)
  Receive Date: 20130620
  Receipt Date: 20190620
  Transmission Date: 20190711
  Serious: Yes (Other)
  Sender: FDA-Public Use
  Company Number: CA-ROCHE-1220438

PATIENT
  Age: 52 Year
  Sex: Female
  Weight: 108 kg

DRUGS (12)
  1. SULFASALAZINE. [Concomitant]
     Active Substance: SULFASALAZINE
  2. VENLAFAXINE XR [Concomitant]
     Active Substance: VENLAFAXINE HYDROCHLORIDE
  3. ASA [Concomitant]
     Active Substance: ASPIRIN
  4. METHOTREXATE. [Concomitant]
     Active Substance: METHOTREXATE
  5. ACTEMRA [Suspect]
     Active Substance: TOCILIZUMAB
     Indication: RHEUMATOID ARTHRITIS
     Route: 042
     Dates: start: 20130424
  6. PREDNISONE. [Concomitant]
     Active Substance: PREDNISONE
     Dosage: PREDNISONE DECREASED TO 3 MG FOR 3 MONTHS THEN DECREASING TO 1 MG PER MONTH UNTIL FINISHED.
     Route: 065
  7. FISH OIL [Concomitant]
     Active Substance: FISH OIL
  8. METOPROLOL. [Concomitant]
     Active Substance: METOPROLOL
     Route: 065
  9. FOLIC ACID. [Concomitant]
     Active Substance: FOLIC ACID
  10. ZANTAC [Concomitant]
     Active Substance: RANITIDINE HYDROCHLORIDE
  11. HYDROXYCHLOROQUINE [Concomitant]
     Active Substance: HYDROXYCHLOROQUINE
  12. LEUCOVORIN [FOLINIC ACID] [Concomitant]
     Active Substance: LEUCOVORIN

REACTIONS (59)
  - Osteoporosis [Not Recovered/Not Resolved]
  - Diverticulitis [Unknown]
  - Tremor [Recovered/Resolved]
  - Periarthritis [Not Recovered/Not Resolved]
  - Sciatica [Not Recovered/Not Resolved]
  - Wound [Unknown]
  - Dyspepsia [Not Recovered/Not Resolved]
  - Cardiac valve disease [Unknown]
  - Bone density decreased [Not Recovered/Not Resolved]
  - Fatigue [Not Recovered/Not Resolved]
  - Arthritis [Unknown]
  - Weight increased [Not Recovered/Not Resolved]
  - Insomnia [Unknown]
  - Eczema [Not Recovered/Not Resolved]
  - Skin ulcer [Unknown]
  - Animal bite [Not Recovered/Not Resolved]
  - Wound dehiscence [Not Recovered/Not Resolved]
  - Pain in extremity [Not Recovered/Not Resolved]
  - Blood pressure diastolic abnormal [Unknown]
  - Fall [Unknown]
  - Ear pain [Not Recovered/Not Resolved]
  - Neck pain [Not Recovered/Not Resolved]
  - Bursitis [Unknown]
  - Rib fracture [Not Recovered/Not Resolved]
  - Rectal haemorrhage [Recovered/Resolved]
  - Tooth fracture [Not Recovered/Not Resolved]
  - Oropharyngeal pain [Not Recovered/Not Resolved]
  - Renal cyst [Not Recovered/Not Resolved]
  - Osteitis [Not Recovered/Not Resolved]
  - Peripheral swelling [Not Recovered/Not Resolved]
  - Hyperhidrosis [Recovered/Resolved]
  - Device breakage [Unknown]
  - Arthralgia [Not Recovered/Not Resolved]
  - Migraine [Not Recovered/Not Resolved]
  - Ligament sprain [Unknown]
  - Contusion [Unknown]
  - Oral herpes [Unknown]
  - Blood pressure diastolic abnormal [Unknown]
  - Back pain [Unknown]
  - Nasopharyngitis [Not Recovered/Not Resolved]
  - Nervousness [Unknown]
  - Back pain [Not Recovered/Not Resolved]
  - Pain in extremity [Unknown]
  - Pain [Not Recovered/Not Resolved]
  - Groin pain [Recovered/Resolved]
  - Pruritus generalised [Unknown]
  - Ligament rupture [Unknown]
  - Hypotension [Unknown]
  - Sinus congestion [Not Recovered/Not Resolved]
  - Fall [Unknown]
  - Oral herpes [Recovered/Resolved]
  - Skin laceration [Recovered/Resolved]
  - Influenza [Recovered/Resolved]
  - Back injury [Recovering/Resolving]
  - Lethargy [Unknown]
  - Rash erythematous [Unknown]
  - Blood pressure increased [Unknown]
  - Ear infection [Unknown]
  - Blood pressure systolic abnormal [Unknown]

NARRATIVE: CASE EVENT DATE: 20130424
